FAERS Safety Report 9437473 (Version 1)
Quarter: 2013Q3

REPORT INFORMATION
  Report Type: Spontaneous
  Country: BR (occurrence: None)
  Receive Date: 20130731
  Receipt Date: 20130731
  Transmission Date: 20140515
  Serious: Yes (Other)
  Sender: FDA-Public Use
  Company Number: DSJ-2013-16761

PATIENT
  Age: 70 Year
  Sex: Male
  Weight: 118 kg

DRUGS (4)
  1. BENICAR [Suspect]
     Indication: HYPERTENSION
     Route: 048
     Dates: start: 2009
  2. HUMAN INSULIN(INSULIN HUMAN) (INSULIN HUMAN) [Concomitant]
  3. CLONIDINE(CLONIDINE)(CLONIDINE) [Concomitant]
  4. ATORVASTATIN(ATORVASTATIN)(ATORVASTATIN) [Concomitant]

REACTIONS (1)
  - Catheter placement [None]
